FAERS Safety Report 17139186 (Version 1)
Quarter: 2019Q4

REPORT INFORMATION
  Report Type: Spontaneous
  Country: IT (occurrence: IT)
  Receive Date: 20191211
  Receipt Date: 20191211
  Transmission Date: 20200122
  Serious: Yes (Hospitalization, Other)
  Sender: FDA-Public Use
  Company Number: IT-AUROBINDO-AUR-APL-2019-104322

PATIENT
  Age: 29 Year
  Sex: Female
  Weight: 47.2 kg

DRUGS (8)
  1. TRASTUZUMAB. [Suspect]
     Active Substance: TRASTUZUMAB
     Indication: BREAST CANCER
     Dosage: 306 MILLIGRAM (NO OF CYCLES RECEIVED 6)
     Route: 041
     Dates: start: 20190506
  2. TRASTUZUMAB. [Suspect]
     Active Substance: TRASTUZUMAB
     Indication: HER-2 POSITIVE BREAST CANCER
  3. PERTUZUMAB. [Suspect]
     Active Substance: PERTUZUMAB
     Indication: BREAST CANCER
     Dosage: 420 MILLIGRAM, CYCLICAL (RECEIVED TOTAL 6 CYCLES)
     Route: 042
     Dates: start: 20190506
  4. PERTUZUMAB. [Suspect]
     Active Substance: PERTUZUMAB
     Indication: HER-2 POSITIVE BREAST CANCER
  5. PACLITAXEL. [Suspect]
     Active Substance: PACLITAXEL
     Indication: BREAST CANCER
  6. CARBOPLATIN. [Suspect]
     Active Substance: CARBOPLATIN
     Indication: BREAST CANCER
     Dosage: 186 MILLIGRAM
     Route: 042
     Dates: start: 20190506, end: 20190912
  7. PACLITAXEL. [Suspect]
     Active Substance: PACLITAXEL
     Indication: HER-2 POSITIVE BREAST CANCER
     Dosage: 121.8 MEGABECQUEREL (LAST DOSE OF PACLITAXEL BEFORE THE SAE/ SERIOUS ADVERSE EVENT WAS ON 12SEP2019)
     Route: 042
  8. CARBOPLATIN. [Suspect]
     Active Substance: CARBOPLATIN
     Indication: HER-2 POSITIVE BREAST CANCER

REACTIONS (1)
  - Post procedural haemorrhage [Recovered/Resolved]

NARRATIVE: CASE EVENT DATE: 20191106
